FAERS Safety Report 8900749 (Version 2)
Quarter: 2012Q4

REPORT INFORMATION
  Report Type: 
  Country: DE (occurrence: DE)
  Receive Date: 20121109
  Receipt Date: 20121211
  Transmission Date: 20130627
  Serious: Yes (Other)
  Sender: FDA-Public Use
  Company Number: DE-ASTELLAS-2012EU009717

PATIENT
  Sex: Female
  Weight: .96 kg

DRUGS (5)
  1. PROGRAF [Suspect]
     Indication: FOETAL EXPOSURE DURING PREGNANCY
     Dosage: 2 mg, Unknown/D
     Route: 064
  2. DECORTIN [Concomitant]
     Indication: FOETAL EXPOSURE DURING PREGNANCY
     Dosage: 100 mg/day, Unknown/D
     Route: 064
  3. CYMEVEN                            /00784201/ [Concomitant]
     Indication: CYTOMEGALOVIRUS INFECTION
     Dosage: 5 mg/kg, Unknown/D
     Route: 064
  4. CYTOTECT [Concomitant]
     Indication: CYTOMEGALOVIRUS INFECTION
     Dosage: UNK
     Route: 064
  5. VALCYTE [Concomitant]
     Indication: CYTOMEGALOVIRUS INFECTION
     Dosage: 900 mg, Unknown/D
     Route: 064

REACTIONS (6)
  - Premature baby [Unknown]
  - Low birth weight baby [Recovered/Resolved]
  - Bronchopulmonary dysplasia [Recovered/Resolved]
  - Cytomegalovirus infection [Recovered/Resolved]
  - CD4 lymphocytes decreased [Recovered/Resolved]
  - Cell-mediated immune deficiency [Recovered/Resolved]
